FAERS Safety Report 9311687 (Version 1)
Quarter: 2013Q2

REPORT INFORMATION
  Report Type: Spontaneous
  Country: FR (occurrence: FR)
  Receive Date: 20130528
  Receipt Date: 20130528
  Transmission Date: 20140414
  Serious: Yes (Hospitalization)
  Sender: FDA-Public Use
  Company Number: FR-SANOFI-AVENTIS-2013SA050651

PATIENT
  Age: 76 Year
  Sex: Male

DRUGS (12)
  1. KARDEGIC [Suspect]
     Indication: PRODUCT USED FOR UNKNOWN INDICATION
     Route: 065
     Dates: end: 20130422
  2. LOVENOX [Suspect]
     Indication: PRODUCT USED FOR UNKNOWN INDICATION
     Route: 065
     Dates: start: 20130322, end: 20130422
  3. TAZOCILLINE [Suspect]
     Indication: PRODUCT USED FOR UNKNOWN INDICATION
     Route: 065
     Dates: start: 20130407, end: 20130417
  4. REVLIMID [Concomitant]
     Dosage: 1/48HOURS, 21 DAYS PER MONTH
  5. DEXAMETHASONE [Concomitant]
     Dates: end: 20130321
  6. CRESTOR [Concomitant]
  7. FLECAINE [Concomitant]
  8. LYRICA [Concomitant]
  9. CLAMOXYL [Concomitant]
     Dates: start: 20130322, end: 20130404
  10. AUGMENTIN [Concomitant]
     Dates: start: 20130322, end: 20130404
  11. PYOSTACINE [Concomitant]
     Dates: start: 20130404, end: 20130407
  12. AMIKLIN [Concomitant]
     Dates: start: 20130407, end: 20130409

REACTIONS (1)
  - Neutropenia [Recovered/Resolved]
